FAERS Safety Report 12696198 (Version 1)
Quarter: 2016Q3

REPORT INFORMATION
  Report Type: Spontaneous
  Country: US (occurrence: US)
  Receive Date: 20160829
  Receipt Date: 20160829
  Transmission Date: 20161109
  Serious: Yes (Other)
  Sender: FDA-Public Use
  Company Number: US-FRI-1000087079

PATIENT
  Sex: Female

DRUGS (2)
  1. ASENAPINE [Suspect]
     Active Substance: ASENAPINE
     Indication: SCHIZOPHRENIA
     Dosage: 5 MG
     Route: 048
  2. INVEGA [Suspect]
     Active Substance: PALIPERIDONE
     Indication: SCHIZOPHRENIA
     Dosage: 6 MG
     Route: 048

REACTIONS (2)
  - Amenorrhoea [Unknown]
  - Hyperprolactinaemia [Unknown]

NARRATIVE: CASE EVENT DATE: 201402
